FAERS Safety Report 15929589 (Version 2)
Quarter: 2019Q3

REPORT INFORMATION
  Report Type: Spontaneous
  Country: US (occurrence: US)
  Receive Date: 20190206
  Receipt Date: 20190820
  Transmission Date: 20191004
  Serious: Yes (Other)
  Sender: FDA-Public Use
  Company Number: US-LUNDBECK-DKLU2060117

PATIENT
  Age: 64 Year
  Sex: Female

DRUGS (1)
  1. NORTHERA [Suspect]
     Active Substance: DROXIDOPA
     Indication: ORTHOSTATIC HYPOTENSION
     Route: 048
     Dates: start: 20180910

REACTIONS (6)
  - Crying [Unknown]
  - Memory impairment [Unknown]
  - Emotional disorder [Unknown]
  - Agitation [Unknown]
  - Condition aggravated [Unknown]
  - Brain injury [Unknown]

NARRATIVE: CASE EVENT DATE: 201809
